FAERS Safety Report 9299499 (Version 1)
Quarter: 2013Q2

REPORT INFORMATION
  Report Type: Report from Study
  Country: CN (occurrence: CN)
  Receive Date: 20130521
  Receipt Date: 20130521
  Transmission Date: 20140414
  Serious: Yes (Other)
  Sender: FDA-Public Use
  Company Number: CN-ROCHE-1225231

PATIENT
  Age: 41 Year
  Sex: Male
  Weight: 62 kg

DRUGS (8)
  1. MYCOPHENOLATE MOFETIL [Suspect]
     Indication: LIVER TRANSPLANT
     Route: 048
     Dates: start: 20060612, end: 200710
  2. MYCOPHENOLATE MOFETIL [Suspect]
     Route: 048
     Dates: start: 2010, end: 2010
  3. TACROLIMUS [Concomitant]
     Indication: LIVER TRANSPLANT
     Route: 048
     Dates: start: 20060612, end: 2007
  4. TACROLIMUS [Concomitant]
     Route: 048
     Dates: start: 2007, end: 2007
  5. TACROLIMUS [Concomitant]
     Route: 048
     Dates: start: 200711
  6. LAMIVUDINE [Concomitant]
     Indication: HEPATITIS B
     Route: 048
     Dates: start: 20060612, end: 201208
  7. ADEFOVIR DIPIVOXIL [Concomitant]
     Indication: HEPATITIS B
     Route: 048
     Dates: start: 201207, end: 201208
  8. ENTECAVIR [Concomitant]
     Indication: HEPATITIS B
     Route: 048
     Dates: start: 201208

REACTIONS (6)
  - Hepatic fibrosis [Not Recovered/Not Resolved]
  - Liver transplant rejection [Not Recovered/Not Resolved]
  - Immunosuppressant drug level decreased [Recovered/Resolved]
  - Drug resistance [Unknown]
  - Gastric varices haemorrhage [Not Recovered/Not Resolved]
  - Ascites [Not Recovered/Not Resolved]
